FAERS Safety Report 5869487-1 (Version None)
Quarter: 2008Q3

REPORT INFORMATION
  Report Type: 
  Country: None (occurrence: None)
  Receive Date: 20080829
  Receipt Date: 20080819
  Transmission Date: 20090109
  Serious: Yes (Other)
  Sender: FDA-Public Use
  Company Number: 230262M08USA

PATIENT
  Age: 42 Year
  Sex: Female

DRUGS (8)
  1. REBIF [Suspect]
     Indication: MULTIPLE SCLEROSIS
     Dosage: 44 MCG, 3 IN 1 WEEKS, SUBCUTANEOUS
     Route: 058
     Dates: start: 20080204
  2. CLOZAPINE [Suspect]
     Indication: BIPOLAR DISORDER
     Dosage: NOT REPORTED, 2 IN 1 DAYS, NOT REPORTED
     Dates: start: 20020101
  3. PROVIGIL [Suspect]
     Indication: FATIGUE
     Dosage: NOT REPORTED, NOT REPORTED, NOT REPORTED
  4. LISINOPRIL [Concomitant]
  5. ATENOLOL [Concomitant]
  6. CLONAZEPAM [Concomitant]
  7. XALATAN [Concomitant]
  8. CLOZAPINE [Concomitant]

REACTIONS (6)
  - DELUSION [None]
  - DRUG INTERACTION [None]
  - FATIGUE [None]
  - INSOMNIA [None]
  - PARANOIA [None]
  - SUICIDAL IDEATION [None]
